FAERS Safety Report 16568339 (Version 1)
Quarter: 2019Q3

REPORT INFORMATION
  Report Type: Spontaneous
  Country: FR (occurrence: FR)
  Receive Date: 20190712
  Receipt Date: 20190712
  Transmission Date: 20191004
  Serious: Yes (Other)
  Sender: FDA-Public Use
  Company Number: FR-ASCEND THERAPEUTICS-2070753

PATIENT
  Age: 65 Year
  Sex: Female

DRUGS (2)
  1. ESTROGEL [Suspect]
     Active Substance: ESTRADIOL
     Indication: MENOPAUSE
     Route: 062
  2. ANDROCUR (CYPRTERONE ACETATE)?INDICATION FOR USE: MENOPAUSE [Suspect]
     Active Substance: CYPROTERONE ACETATE
     Route: 048

REACTIONS (1)
  - Meningioma [Not Recovered/Not Resolved]
